FAERS Safety Report 25381457 (Version 1)
Quarter: 2025Q2

REPORT INFORMATION
  Report Type: Spontaneous
  Country: CN (occurrence: CN)
  Receive Date: 20250530
  Receipt Date: 20250530
  Transmission Date: 20250716
  Serious: Yes (Hospitalization)
  Sender: MERCK SHARP & DOHME LLC
  Company Number: CN-009507513-2288117

PATIENT
  Age: 70 Year
  Sex: Male

DRUGS (7)
  1. PEMBROLIZUMAB [Suspect]
     Active Substance: PEMBROLIZUMAB
     Indication: Squamous cell carcinoma of lung
     Dosage: 200MG ON DAY 1, EVERY 21 DAYS, 4 CYCLES
     Route: 065
  2. PEMBROLIZUMAB [Suspect]
     Active Substance: PEMBROLIZUMAB
     Indication: Squamous cell carcinoma of lung
     Dosage: 200MG ON DAY 1, EVERY 21 DAYS, 2 CYCLES
     Route: 065
  3. PEMBROLIZUMAB [Suspect]
     Active Substance: PEMBROLIZUMAB
     Indication: Squamous cell carcinoma of lung
     Dosage: 200MG ON DAY 1, EVERY THREE WEEKS
     Route: 065
  4. PACLITAXEL [Concomitant]
     Active Substance: PACLITAXEL
     Indication: Squamous cell carcinoma of lung
     Dosage: 500MG ON DAY 1, EVERY 21 DAYS, 4 CYCLES
  5. PACLITAXEL [Concomitant]
     Active Substance: PACLITAXEL
     Indication: Squamous cell carcinoma of lung
     Dosage: 400MG ON DAY 1, EVERY 21 DAYS, 2 CYCLES
  6. CARBOPLATIN [Concomitant]
     Active Substance: CARBOPLATIN
     Indication: Squamous cell carcinoma of lung
     Dosage: 600MG ON DAY 1, EVERY 21 DAYS, 4 CYCLES
  7. CARBOPLATIN [Concomitant]
     Active Substance: CARBOPLATIN
     Indication: Squamous cell carcinoma of lung
     Dosage: 400MG ON DAY 1, EVERY 21 DAYS, 2 CYCLES

REACTIONS (4)
  - Dermatitis bullous [Recovered/Resolved]
  - Rash maculo-papular [Recovering/Resolving]
  - Loss of personal independence in daily activities [Recovered/Resolved]
  - Pruritus [Recovered/Resolved]
